FAERS Safety Report 17877379 (Version 6)
Quarter: 2022Q1

REPORT INFORMATION
  Report Type: Report from Study
  Country: US (occurrence: US)
  Receive Date: 20200609
  Receipt Date: 20220322
  Transmission Date: 20220423
  Serious: No
  Sender: FDA-Public Use
  Company Number: US-ABBVIE-20K-163-3363610-00

PATIENT
  Sex: Male
  Weight: 105 kg

DRUGS (6)
  1. HUMIRA [Suspect]
     Active Substance: ADALIMUMAB
     Indication: Psoriatic arthropathy
     Route: 058
     Dates: start: 201908
  2. HUMIRA [Suspect]
     Active Substance: ADALIMUMAB
     Indication: Psoriasis
     Route: 058
  3. HUMIRA [Suspect]
     Active Substance: ADALIMUMAB
     Route: 058
  4. HUMIRA [Suspect]
     Active Substance: ADALIMUMAB
     Route: 058
  5. MODERNA COVID-19 VACCINE [Suspect]
     Active Substance: ELASOMERAN
     Indication: COVID-19 immunisation
     Route: 030
  6. METHOTREXATE [Concomitant]
     Active Substance: METHOTREXATE
     Indication: Product used for unknown indication

REACTIONS (9)
  - Condition aggravated [Recovered/Resolved]
  - Condition aggravated [Unknown]
  - Musculoskeletal stiffness [Unknown]
  - Bursitis [Unknown]
  - Pain in extremity [Unknown]
  - Joint stiffness [Unknown]
  - Fatigue [Unknown]
  - Arthralgia [Unknown]
  - Neck pain [Unknown]
